FAERS Safety Report 5008921-6 (Version None)
Quarter: 2006Q2

REPORT INFORMATION
  Report Type: 
  Country: None (occurrence: None)
  Receive Date: 20060518
  Receipt Date: 20060509
  Transmission Date: 20061013
  Serious: Yes (Hospitalization)
  Sender: FDA-Public Use
  Company Number: 222966

PATIENT
  Age: 63 Year
  Sex: Male

DRUGS (4)
  1. RAPTIVA [Suspect]
     Indication: PSORIASIS
     Dosage: 0.7 ML, 1/WEEK, SUBCUTANEOUS
     Route: 058
     Dates: start: 20051210
  2. PRILOSEC [Concomitant]
  3. CLARINEX [Concomitant]
  4. ASPIRIN [Concomitant]

REACTIONS (8)
  - ABSCESS [None]
  - APPENDICITIS PERFORATED [None]
  - GASTRIC NEOPLASM [None]
  - GASTROINTESTINAL STROMAL TUMOUR [None]
  - ILEUS [None]
  - INCISION SITE COMPLICATION [None]
  - SMALL INTESTINAL HAEMORRHAGE [None]
  - URETERAL DISORDER [None]
